FAERS Safety Report 6244003-3 (Version None)
Quarter: 2009Q2

REPORT INFORMATION
  Report Type: 
  Country: None (occurrence: None)
  Receive Date: 20090623
  Receipt Date: 20090608
  Transmission Date: 20091009
  Serious: Yes (Hospitalization)
  Sender: FDA-Public Use
  Company Number: CHNY2009FR01759

PATIENT
  Age: 4 Month
  Sex: Female

DRUGS (1)
  1. HYOSCINE HBR HYT [Suspect]
     Indication: SALIVARY HYPERSECRETION
     Dosage: 0.25 DF, Q72H
     Dates: start: 20090421

REACTIONS (2)
  - OFF LABEL USE [None]
  - OVERDOSE [None]
